FAERS Safety Report 9685479 (Version 1)
Quarter: 2013Q4

REPORT INFORMATION
  Report Type: Spontaneous
  Country: ES (occurrence: ES)
  Receive Date: 20131113
  Receipt Date: 20131113
  Transmission Date: 20140711
  Serious: Yes (Death)
  Sender: FDA-Public Use
  Company Number: ES-ASTELLAS-2013EU009801

PATIENT
  Sex: Male

DRUGS (1)
  1. MYCAMINE [Suspect]
     Indication: SYSTEMIC CANDIDA
     Dosage: UNK
     Route: 048
     Dates: start: 201310

REACTIONS (1)
  - Death [Fatal]
